FAERS Safety Report 13613383 (Version 9)
Quarter: 2020Q2

REPORT INFORMATION
  Report Type: Spontaneous
  Country: US (occurrence: US)
  Receive Date: 20170605
  Receipt Date: 20200603
  Transmission Date: 20200713
  Serious: No
  Sender: FDA-Public Use
  Company Number: US-ACTELION-A-NJ2017-154699

PATIENT
  Age: 8 Year
  Sex: Male
  Weight: 28.57 kg

DRUGS (6)
  1. ADCIRCA [Concomitant]
     Active Substance: TADALAFIL
  2. TRACLEER [Suspect]
     Active Substance: BOSENTAN
     Indication: PULMONARY ARTERIAL HYPERTENSION
     Dosage: 62.5 MG, BID
     Route: 048
  3. REMODULIN [Suspect]
     Active Substance: TREPROSTINIL
     Indication: PRODUCT USED FOR UNKNOWN INDICATION
  4. SILDENAFIL. [Concomitant]
     Active Substance: SILDENAFIL
  5. WARFARIN [Concomitant]
     Active Substance: WARFARIN
  6. LETAIRIS [Concomitant]
     Active Substance: AMBRISENTAN

REACTIONS (15)
  - Oropharyngeal pain [Unknown]
  - Infection [Unknown]
  - Infusion site haemorrhage [Unknown]
  - Vomiting [Unknown]
  - Viral infection [Unknown]
  - Diarrhoea [Unknown]
  - Infusion site discolouration [Unknown]
  - Sinusitis [Unknown]
  - Injury [Unknown]
  - Abdominal pain [Unknown]
  - Injection site hypersensitivity [Unknown]
  - Nasal congestion [Unknown]
  - Cough [Unknown]
  - Localised infection [Unknown]
  - Pharyngitis [Unknown]

NARRATIVE: CASE EVENT DATE: 20170523
